FAERS Safety Report 9909094 (Version 1)
Quarter: 2014Q1

REPORT INFORMATION
  Report Type: Spontaneous
  Country: GB (occurrence: GB)
  Receive Date: 20140219
  Receipt Date: 20140219
  Transmission Date: 20141002
  Serious: Yes (Death, Other)
  Sender: FDA-Public Use
  Company Number: GB-TEVA-463240ISR

PATIENT
  Age: 18 Year
  Sex: Male

DRUGS (2)
  1. DOXYCYCLINE [Suspect]
     Indication: ACNE
     Dosage: 50 MG/DAY FOR 1Y
     Route: 065
     Dates: start: 201202
  2. DOXYCYCLINE [Suspect]
     Indication: ACNE
     Dosage: DISPENSED 100MG IN 50MG PACKAGING
     Route: 065
     Dates: end: 201108

REACTIONS (5)
  - Suicidal ideation [Fatal]
  - Completed suicide [Fatal]
  - Malaise [Recovered/Resolved]
  - Depressed mood [Not Recovered/Not Resolved]
  - Drug dispensing error [Not Recovered/Not Resolved]
